FAERS Safety Report 20775897 (Version 1)
Quarter: 2022Q2

REPORT INFORMATION
  Report Type: Spontaneous
  Country: US (occurrence: US)
  Receive Date: 20220502
  Receipt Date: 20220502
  Transmission Date: 20220721
  Serious: No
  Sender: FDA-Public Use
  Company Number: US-PFIZER INC-2020080881

PATIENT
  Age: 41 Year
  Sex: Male
  Weight: 96.16 kg

DRUGS (2)
  1. LYRICA [Suspect]
     Active Substance: PREGABALIN
     Indication: Fibromyalgia
     Dosage: 225 MG, 2X/DAY [TAKE ONE CAPSULE BY MOUTH TWICE A DAY]
     Route: 048
  2. LYRICA [Suspect]
     Active Substance: PREGABALIN
     Dosage: 225 MG [TAKING IT ONCE]

REACTIONS (4)
  - Intentional product misuse [Unknown]
  - Dizziness [Unknown]
  - Feeling abnormal [Unknown]
  - Insomnia [Unknown]
